FAERS Safety Report 7105733-4 (Version None)
Quarter: 2010Q4

REPORT INFORMATION
  Report Type: 
  Country: None (occurrence: None)
  Receive Date: 20101110
  Receipt Date: 20101025
  Transmission Date: 20110411
  Serious: Yes (Hospitalization, Disabling)
  Sender: FDA-Public Use
  Company Number: 2008PV000025

PATIENT
  Age: 70 Year
  Sex: Female
  Weight: 68 kg

DRUGS (10)
  1. DEPOCYT [Suspect]
     Indication: CENTRAL NERVOUS SYSTEM LYMPHOMA
     Dosage: 50 MG; Q3W; INTH
     Route: 037
     Dates: start: 20070314
  2. DEXAMETHASONE [Concomitant]
  3. VINCRISTINE [Concomitant]
  4. METHOTREXATE [Concomitant]
  5. IFOSFAMIDE [Concomitant]
  6. METOPROLOL [Concomitant]
  7. PANTOPRAZOLE [Concomitant]
  8. ZOPICLONE [Concomitant]
  9. ARA-C [Concomitant]
  10. CYCLOPHOSPHAMIDE [Concomitant]

REACTIONS (2)
  - CAUDA EQUINA SYNDROME [None]
  - NEUROTOXICITY [None]
